FAERS Safety Report 9305673 (Version 2)
Quarter: 2013Q2

REPORT INFORMATION
  Report Type: Spontaneous
  Country: US (occurrence: US)
  Receive Date: 20130522
  Receipt Date: 20130522
  Transmission Date: 20140414
  Serious: Yes (Hospitalization)
  Sender: FDA-Public Use
  Company Number: US-RB-054632-13

PATIENT
  Age: 59 Year
  Sex: Male

DRUGS (1)
  1. DIGESTIVE ADVANTAGE DAILY PROBIOTIC [Suspect]
     Indication: PRODUCT USED FOR UNKNOWN INDICATION
     Dosage: 1 CAPSULE DAILY FOR 2 DAYS
     Route: 048
     Dates: start: 20130131

REACTIONS (2)
  - Flatulence [Recovered/Resolved]
  - Abdominal pain [Recovered/Resolved]
